FAERS Safety Report 25412823 (Version 1)
Quarter: 2025Q2

REPORT INFORMATION
  Report Type: Spontaneous
  Country: IR (occurrence: IR)
  Receive Date: 20250609
  Receipt Date: 20250609
  Transmission Date: 20250717
  Serious: Yes (Hospitalization, Other)
  Sender: PFIZER
  Company Number: IR-MLMSERVICE-20200326-2225919-2

PATIENT
  Age: 68 Year
  Sex: Female

DRUGS (7)
  1. METHOTREXATE SODIUM [Interacting]
     Active Substance: METHOTREXATE SODIUM
     Dosage: UNK, 1X/DAY (SINCE ONE MONTH AGO)
  2. ASPIRIN [Interacting]
     Active Substance: ASPIRIN
  3. DIGOXIN [Suspect]
     Active Substance: DIGOXIN
  4. LOSARTAN [Concomitant]
     Active Substance: LOSARTAN
  5. CARVEDILOL [Concomitant]
     Active Substance: CARVEDILOL
  6. LEVOCARNITINE [Concomitant]
     Active Substance: LEVOCARNITINE
  7. HYDROCHLOROTHIAZIDE\TRIAMTERENE [Concomitant]
     Active Substance: HYDROCHLOROTHIAZIDE\TRIAMTERENE

REACTIONS (10)
  - Product dispensing error [Recovering/Resolving]
  - Wrong product administered [Recovering/Resolving]
  - Toxicity to various agents [Recovering/Resolving]
  - Mouth ulceration [Recovering/Resolving]
  - Paraesthesia [Recovering/Resolving]
  - Muscular weakness [Recovering/Resolving]
  - Stomatitis haemorrhagic [Recovering/Resolving]
  - White blood cell count decreased [Recovering/Resolving]
  - Platelet count decreased [Recovering/Resolving]
  - Drug interaction [Recovering/Resolving]
